FAERS Safety Report 16687208 (Version 3)
Quarter: 2019Q4

REPORT INFORMATION
  Report Type: Spontaneous
  Country: US (occurrence: US)
  Receive Date: 20190809
  Receipt Date: 20191218
  Transmission Date: 20200122
  Serious: Yes (Other)
  Sender: FDA-Public Use
  Company Number: US-PURDUE-USA-2019-0147945

PATIENT

DRUGS (1)
  1. HYDROCODONE BITARTRATE (SIMILAR TO NDA 206627) [Suspect]
     Active Substance: HYDROCODONE BITARTRATE
     Indication: BACK DISORDER
     Dosage: 10 UNK, UNK
     Route: 048
     Dates: start: 2009

REACTIONS (2)
  - Spinal nerve stimulator implantation [Unknown]
  - Spinal fusion surgery [Unknown]
